FAERS Safety Report 21684355 (Version 1)
Quarter: 2022Q4

REPORT INFORMATION
  Report Type: Spontaneous
  Country: US (occurrence: None)
  Receive Date: 20221203
  Receipt Date: 20221203
  Transmission Date: 20230113
  Serious: Yes (Hospitalization)
  Sender: FDA-Public Use
  Company Number: None

PATIENT
  Sex: Male

DRUGS (2)
  1. DROXIDOPA [Suspect]
     Active Substance: DROXIDOPA
     Indication: Parkinson^s disease
     Dosage: 100MG ORAL??TAKE 4 CAPSULES BY MOUTH AT 10 AM, 4 CAPSULES AT 1 PM, AND 4 CAPSULES AT 4 PM. TOTAL 12
     Route: 048
     Dates: start: 20211011
  2. CARBIDOPA\LEVODOPA [Suspect]
     Active Substance: CARBIDOPA\LEVODOPA

REACTIONS (1)
  - Blood pressure fluctuation [None]
